FAERS Safety Report 12735362 (Version 1)
Quarter: 2016Q3

REPORT INFORMATION
  Report Type: Spontaneous
  Country: US (occurrence: US)
  Receive Date: 20160912
  Receipt Date: 20160912
  Transmission Date: 20161109
  Serious: No
  Sender: FDA-Public Use
  Company Number: US-GLENMARK PHARMACEUTICALS INC, USA.-2016GMK022343

PATIENT

DRUGS (2)
  1. GABAPENTIN. [Suspect]
     Active Substance: GABAPENTIN
     Indication: CEREBROVASCULAR ACCIDENT
     Dosage: 900 MG, TID
     Route: 048
  2. GABAPENTIN. [Suspect]
     Active Substance: GABAPENTIN
     Indication: PAIN
     Dosage: 300 MG, TID
     Route: 048
     Dates: start: 201511

REACTIONS (9)
  - Hyperphagia [Not Recovered/Not Resolved]
  - Central pain syndrome [Unknown]
  - Condition aggravated [Unknown]
  - Amnesia [Not Recovered/Not Resolved]
  - Dizziness [Not Recovered/Not Resolved]
  - Drug ineffective for unapproved indication [Unknown]
  - Vision blurred [Not Recovered/Not Resolved]
  - Gait disturbance [Unknown]
  - Dry mouth [Unknown]

NARRATIVE: CASE EVENT DATE: 201511
